FAERS Safety Report 10038338 (Version 1)
Quarter: 2014Q1

REPORT INFORMATION
  Report Type: Spontaneous
  Country: US (occurrence: None)
  Receive Date: 20140306
  Receipt Date: 20140306
  Transmission Date: 20141002
  Serious: Yes (Other)
  Sender: FDA-Public Use
  Company Number: 163-21880-13106059

PATIENT
  Sex: Male
  Weight: 76.2 kg

DRUGS (9)
  1. REVLIMID [Suspect]
     Indication: PLASMA CELL MYELOMA
     Dosage: 10 MG, 21 IN 28 D, PO
     Route: 048
     Dates: start: 20130710
  2. SPIRONOLACTONE [Concomitant]
  3. MAGNESIUM OXIDE [Concomitant]
  4. THERA-M [Concomitant]
  5. ASPIRIN (ACETYLSALICYLIC ACID)(ENTERIC-COATED TABLET) [Concomitant]
  6. BENADRYL (DIPHENHYDRAMINE) [Concomitant]
  7. PREDNISONE [Concomitant]
  8. GABAPENTIN [Concomitant]
  9. DOCUSATE SODIUM-SENNOSIDES (COLOXYL WITH SENNA)(TABLETS) [Concomitant]

REACTIONS (1)
  - Thrombosis [None]
